FAERS Safety Report 8539011-3 (Version None)
Quarter: 2012Q3

REPORT INFORMATION
  Report Type: 
  Country: None (occurrence: None)
  Receive Date: 20120726
  Receipt Date: 20120723
  Transmission Date: 20120928
  Serious: Yes (Death)
  Sender: FDA-Public Use
  Company Number: PHEH2012US011962

PATIENT
  Sex: Male
  Weight: 95.5 kg

DRUGS (2)
  1. EXJADE [Suspect]
     Indication: NEOPLASM
  2. EXJADE [Suspect]
     Indication: IRON METABOLISM DISORDER
     Dosage: 1500 MG, QD
     Route: 048

REACTIONS (2)
  - SEPSIS [None]
  - PANCREATITIS ACUTE [None]
